FAERS Safety Report 10566415 (Version 1)
Quarter: 2014Q4

REPORT INFORMATION
  Report Type: Spontaneous
  Country: FR (occurrence: FR)
  Receive Date: 20141105
  Receipt Date: 20141105
  Transmission Date: 20150529
  Serious: Yes (Hospitalization)
  Sender: FDA-Public Use
  Company Number: FR-TEVA-519330ISR

PATIENT
  Age: 77 Year
  Sex: Female

DRUGS (14)
  1. URBANYL 10 MG [Suspect]
     Active Substance: CLOBAZAM
     Dosage: .5 TABLET DAILY;
     Route: 048
     Dates: start: 20140711, end: 20140926
  2. COVERAM [Concomitant]
     Active Substance: AMLODIPINE\PERINDOPRIL
  3. METFORMINE [Suspect]
     Active Substance: METFORMIN HYDROCHLORIDE
     Dosage: 3 DOSAGE FORMS DAILY; LONG-STANDING TREATMENT
     Route: 048
     Dates: end: 20140926
  4. ATORVASTATINE [Concomitant]
     Active Substance: ATORVASTATIN
  5. TOPALGIC [Concomitant]
     Active Substance: TRAMADOL
  6. VOGALENE [Suspect]
     Active Substance: METOPIMAZINE
     Route: 048
     Dates: start: 20140707, end: 20140926
  7. LEXOMIL ROCHE [Concomitant]
     Active Substance: BROMAZEPAM
  8. DUOPLAVIN [Concomitant]
     Active Substance: ASPIRIN\CLOPIDOGREL
  9. DAFLON [Concomitant]
     Active Substance: DIOSMIN\HESPERIDIN
  10. LAMOTRIGINE MYLAN 25 MG [Suspect]
     Active Substance: LAMOTRIGINE
     Dosage: 25 MILLIGRAM DAILY;
     Route: 048
     Dates: start: 20140708, end: 20140926
  11. DIAMICRON 60 MG [Suspect]
     Active Substance: GLICLAZIDE
     Dosage: 1 TABLET DAILY; LONG-STANDING TREATMENT
     Dates: end: 20140926
  12. ATENOLOL. [Concomitant]
     Active Substance: ATENOLOL
  13. LAMICTAL [Concomitant]
     Active Substance: LAMOTRIGINE
     Dosage: 150 MILLIGRAM DAILY;
     Dates: start: 20140916
  14. URBANYL 10 MG [Suspect]
     Active Substance: CLOBAZAM
     Dosage: 2 TABLET DAILY;
     Route: 048
     Dates: start: 20140625, end: 20140710

REACTIONS (11)
  - Blood creatine phosphokinase increased [Unknown]
  - Abdominal pain upper [Not Recovered/Not Resolved]
  - Aspartate aminotransferase increased [Not Recovered/Not Resolved]
  - Blood bilirubin increased [Not Recovered/Not Resolved]
  - Ocular icterus [Not Recovered/Not Resolved]
  - Alanine aminotransferase increased [Not Recovered/Not Resolved]
  - Gamma-glutamyltransferase [Not Recovered/Not Resolved]
  - Faeces discoloured [Recovered/Resolved with Sequelae]
  - Blood alkaline phosphatase increased [Recovered/Resolved]
  - Prothrombin time ratio decreased [Not Recovered/Not Resolved]
  - Autoimmune hepatitis [None]

NARRATIVE: CASE EVENT DATE: 20140926
